FAERS Safety Report 8716115 (Version 3)
Quarter: 2012Q4

REPORT INFORMATION
  Report Type: Report from Study
  Country: US (occurrence: US)
  Receive Date: 20120809
  Receipt Date: 20120921
  Transmission Date: 20130627
  Serious: Yes (Other)
  Sender: FDA-Public Use
  Company Number: US-ABBOTT-12P-163-0963255-00

PATIENT
  Age: 51 None
  Sex: Male
  Weight: 93.07 kg

DRUGS (1)
  1. HUMIRA 40 MG/0.8 ML PEN [Suspect]
     Indication: RHEUMATOID ARTHRITIS
     Dates: start: 20070504

REACTIONS (5)
  - Insomnia [Recovered/Resolved]
  - Mobility decreased [Recovered/Resolved]
  - Hepatic function abnormal [Recovered/Resolved]
  - Abdominal infection [Recovered/Resolved]
  - Pain [Not Recovered/Not Resolved]
